FAERS Safety Report 8221942-5 (Version None)
Quarter: 2012Q1

REPORT INFORMATION
  Report Type: 
  Country: None (occurrence: None)
  Receive Date: 20120320
  Receipt Date: 20120312
  Transmission Date: 20120608
  Serious: Yes (Other)
  Sender: FDA-Public Use
  Company Number: US-ALEXION-A201200467

PATIENT
  Age: 22 Year
  Sex: Female

DRUGS (2)
  1. SOLIRIS [Suspect]
     Indication: HAEMOLYTIC URAEMIC SYNDROME
     Route: 042
  2. ROCEPHIN [Concomitant]
     Indication: ANTIBIOTIC PROPHYLAXIS
     Dosage: UNK, QW
     Dates: start: 20120201

REACTIONS (8)
  - PLATELET DISORDER [None]
  - BLOOD LACTATE DEHYDROGENASE ABNORMAL [None]
  - PYREXIA [None]
  - NEUTROPENIA [None]
  - HAEMOGLOBIN DECREASED [None]
  - RENAL FAILURE [None]
  - WOUND NECROSIS [None]
  - WHITE BLOOD CELL DISORDER [None]
